FAERS Safety Report 25604702 (Version 1)
Quarter: 2025Q3

REPORT INFORMATION
  Report Type: Spontaneous
  Country: US (occurrence: US)
  Receive Date: 20250725
  Receipt Date: 20250725
  Transmission Date: 20251021
  Serious: Yes (Hospitalization, Other)
  Sender: SPECGX
  Company Number: US-SPECGX-T202501244

PATIENT
  Age: 47 Year
  Sex: Male

DRUGS (4)
  1. METHADONE [Suspect]
     Active Substance: METHADONE HYDROCHLORIDE
     Indication: Product used for unknown indication
     Route: 065
  2. COCAINE [Suspect]
     Active Substance: COCAINE
     Indication: Product used for unknown indication
     Route: 065
  3. ALCOHOL [Suspect]
     Active Substance: ALCOHOL
     Indication: Product used for unknown indication
     Route: 065
  4. FENTANYL [Suspect]
     Active Substance: FENTANYL
     Indication: Product used for unknown indication
     Route: 065

REACTIONS (14)
  - Renal failure [Unknown]
  - Condition aggravated [Unknown]
  - Thrombotic thrombocytopenic purpura [Recovering/Resolving]
  - Cholelithiasis [Unknown]
  - Haemodialysis [Unknown]
  - Endotracheal intubation [Unknown]
  - Plasmapheresis [Unknown]
  - Transfusion [Unknown]
  - Staphylococcal infection [Unknown]
  - Escherichia infection [Unknown]
  - Substance use [Unknown]
  - Hepatosplenomegaly [Unknown]
  - Lung opacity [Unknown]
  - Hyperhidrosis [Unknown]
